FAERS Safety Report 9361005 (Version 1)
Quarter: 2013Q2

REPORT INFORMATION
  Report Type: Spontaneous
  Country: FR (occurrence: FR)
  Receive Date: 20130621
  Receipt Date: 20130621
  Transmission Date: 20140414
  Serious: Yes (Hospitalization)
  Sender: FDA-Public Use
  Company Number: FR-PFIZER INC-2013180294

PATIENT
  Age: 62 Year
  Sex: Female

DRUGS (2)
  1. SOLU-MEDROL [Suspect]
     Indication: SCIATICA
     Dosage: 120 MG DAILY
     Route: 030
     Dates: start: 20130430, end: 20130505
  2. LERCAN [Concomitant]
     Indication: HYPERTENSION

REACTIONS (1)
  - Cellulitis [Recovering/Resolving]
